FAERS Safety Report 6971855-1 (Version None)
Quarter: 2010Q3

REPORT INFORMATION
  Report Type: 
  Country: None (occurrence: None)
  Receive Date: 20100908
  Receipt Date: 20100908
  Transmission Date: 20110219
  Serious: Yes (Hospitalization)
  Sender: FDA-Public Use
  Company Number: None

PATIENT
  Age: 78 Year
  Sex: Male
  Weight: 91.2 kg

DRUGS (1)
  1. WARFARIN [Suspect]
     Indication: ATRIAL FIBRILLATION
     Dates: start: 20070507

REACTIONS (6)
  - BILE DUCT OBSTRUCTION [None]
  - BILE DUCT STENOSIS [None]
  - COAGULOPATHY [None]
  - INTERNATIONAL NORMALISED RATIO ABNORMAL [None]
  - JAUNDICE [None]
  - LIVER FUNCTION TEST ABNORMAL [None]
